FAERS Safety Report 5744718-7 (Version None)
Quarter: 2008Q2

REPORT INFORMATION
  Report Type: 
  Country: None (occurrence: None)
  Receive Date: 20080520
  Receipt Date: 20080515
  Transmission Date: 20081010
  Serious: Yes (Other)
  Sender: FDA-Public Use
  Company Number: US-ABBOTT-08P-163-0452003-00

PATIENT
  Sex: Female

DRUGS (1)
  1. HUMIRA [Suspect]
     Indication: DRUG USE FOR UNKNOWN INDICATION

REACTIONS (6)
  - BRONCHITIS [None]
  - HYSTERECTOMY [None]
  - PNEUMONIA [None]
  - SALPINGO-OOPHORECTOMY [None]
  - STAPHYLOCOCCAL INFECTION [None]
  - SURGERY [None]
